FAERS Safety Report 5314626-4 (Version None)
Quarter: 2007Q2

REPORT INFORMATION
  Report Type: 
  Country: None (occurrence: None)
  Receive Date: 20070427
  Receipt Date: 20070417
  Transmission Date: 20071010
  Serious: Yes (Hospitalization)
  Sender: FDA-Public Use
  Company Number: 6032248

PATIENT
  Age: 73 Year
  Sex: Female

DRUGS (6)
  1. BISOPROLOL FUMARATE [Suspect]
     Indication: DRUG USE FOR UNKNOWN INDICATION
     Dosage: 10 MG (10 MG, 1 D); ORAL
     Route: 048
  2. AMARYL [Suspect]
     Indication: DRUG USE FOR UNKNOWN INDICATION
     Dosage: 2 MG (2 MG, 1 D); ORAL
     Route: 048
  3. ATORVASTATIN CALCIUM [Suspect]
     Indication: DRUG USE FOR UNKNOWN INDICATION
     Dosage: 10 MG (10 MG, 1 D); ORAL
     Route: 048
  4. PREVISCAN (20 MG, TABLET) (FLUINDIONE) [Suspect]
     Indication: DRUG USE FOR UNKNOWN INDICATION
     Dosage: ORAL
     Route: 048
  5. LASIX [Suspect]
     Indication: DRUG USE FOR UNKNOWN INDICATION
     Dosage: 1.5 DOSAGE FORMS (1,5 DOSAGE FORMS, 1 D); ORAL
     Route: 048
  6. RAMIPRIL [Suspect]
     Indication: DRUG USE FOR UNKNOWN INDICATION
     Dosage: 10 MG (5 MG, 2 IN 1 D); ORAL
     Route: 048

REACTIONS (2)
  - PRURITUS [None]
  - WEIGHT DECREASED [None]
